FAERS Safety Report 10234560 (Version 2)
Quarter: 2014Q3

REPORT INFORMATION
  Report Type: Spontaneous
  Country: ZA (occurrence: ZA)
  Receive Date: 20140613
  Receipt Date: 20140701
  Transmission Date: 20150326
  Serious: Yes (Hospitalization, Other)
  Sender: FDA-Public Use
  Company Number: ZA-RANBAXY-2014R5-82041

PATIENT
  Sex: Female
  Weight: 3.25 kg

DRUGS (1)
  1. BETAROXIME T [Suspect]
     Active Substance: CEFUROXIME
     Indication: BACTERIAL INFECTION
     Dosage: UNK
     Route: 064

REACTIONS (3)
  - Dyspnoea [Unknown]
  - Foetal exposure during pregnancy [Recovered/Resolved]
  - Convulsion [Unknown]
